FAERS Safety Report 17865063 (Version 1)
Quarter: 2020Q2

REPORT INFORMATION
  Report Type: Spontaneous
  Country: US (occurrence: US)
  Receive Date: 20200604
  Receipt Date: 20200604
  Transmission Date: 20200714
  Serious: Yes (Hospitalization)
  Sender: FDA-Public Use
  Company Number: None

PATIENT
  Age: 62 Year
  Sex: Male

DRUGS (10)
  1. BANOPHEN [Concomitant]
     Active Substance: DIPHENHYDRAMINE HYDROCHLORIDE
  2. CLOBETASOL [Concomitant]
     Active Substance: CLOBETASOL
  3. LIDOCAINE. [Concomitant]
     Active Substance: LIDOCAINE
  4. CAPTOPRIL. [Concomitant]
     Active Substance: CAPTOPRIL
  5. GEMFIBROZIL. [Concomitant]
     Active Substance: GEMFIBROZIL
  6. A-HYDROCORT [Concomitant]
     Active Substance: HYDROCORTISONE SODIUM SUCCINATE
  7. ERLEADA [Suspect]
     Active Substance: APALUTAMIDE
     Indication: PROSTATE CANCER
     Route: 048
     Dates: start: 20200314, end: 20200603
  8. PREDNISONE. [Concomitant]
     Active Substance: PREDNISONE
  9. METOPROLOL TARTRATE. [Concomitant]
     Active Substance: METOPROLOL TARTRATE
  10. ALPRAZOLAM. [Concomitant]
     Active Substance: ALPRAZOLAM

REACTIONS (3)
  - Rash [None]
  - Stevens-Johnson syndrome [None]
  - Dermatitis allergic [None]

NARRATIVE: CASE EVENT DATE: 20200511
